FAERS Safety Report 15517294 (Version 1)
Quarter: 2018Q4

REPORT INFORMATION
  Report Type: Spontaneous
  Country: US (occurrence: US)
  Receive Date: 20181011
  Receipt Date: 20181011
  Transmission Date: 20190205
  Serious: No
  Sender: FDA-Public Use
  Company Number: None

PATIENT
  Age: 56 Year
  Sex: Female

DRUGS (4)
  1. LEVOTHYROXINE. [Concomitant]
     Active Substance: LEVOTHYROXINE
  2. PREMARIN [Concomitant]
     Active Substance: ESTROGENS, CONJUGATED
  3. ENBREL [Suspect]
     Active Substance: ETANERCEPT
  4. ZOLOFT [Concomitant]
     Active Substance: SERTRALINE HYDROCHLORIDE

REACTIONS (3)
  - Rash [None]
  - Pruritus [None]
  - Rash generalised [None]

NARRATIVE: CASE EVENT DATE: 20181004
